FAERS Safety Report 20851270 (Version 1)
Quarter: 2022Q2

REPORT INFORMATION
  Report Type: Spontaneous
  Country: US (occurrence: None)
  Receive Date: 20220519
  Receipt Date: 20220519
  Transmission Date: 20220720
  Serious: No
  Sender: FDA-Public Use
  Company Number: 2022A184748

PATIENT
  Sex: Female
  Weight: 104.3 kg

DRUGS (2)
  1. LOKELMA [Suspect]
     Active Substance: SODIUM ZIRCONIUM CYCLOSILICATE
     Indication: Blood potassium increased
     Route: 048
  2. INSULIN NOS [Concomitant]
     Active Substance: INSULIN NOS
     Dosage: 4 UNITS

REACTIONS (1)
  - Blood glucose increased [Unknown]
